FAERS Safety Report 5116758-2 (Version None)
Quarter: 2006Q3

REPORT INFORMATION
  Report Type: 
  Country: None (occurrence: None)
  Receive Date: 20060928
  Receipt Date: 20060106
  Transmission Date: 20061208
  Serious: Yes (Hospitalization, Other)
  Sender: FDA-Public Use
  Company Number: US-AVENTIS-200610286US

PATIENT
  Sex: Female
  Weight: 59.09 kg

DRUGS (34)
  1. LANTUS [Suspect]
     Indication: DIABETES MELLITUS INSULIN-DEPENDENT
     Dates: start: 20050203
  2. HUMULIN [Concomitant]
     Dosage: DOSE: SLIDING SCALE
  3. NITROGLYCERIN [Concomitant]
     Indication: CHEST PAIN
     Route: 060
  4. NITROGLYCERIN [Concomitant]
     Indication: NAUSEA
     Route: 060
  5. NITROGLYCERIN [Concomitant]
     Dosage: DOSE: 0.6MG/HR FROM 8AM TO 8PM
  6. ASPIRIN [Concomitant]
  7. CRESTOR [Concomitant]
  8. AMBIEN [Concomitant]
  9. METOCLOPRAMIDE [Concomitant]
  10. NEURONTIN [Concomitant]
  11. ZAROXOLYN [Concomitant]
  12. ATIVAN [Concomitant]
  13. CILOSTAZOL [Concomitant]
  14. LIDODERM PATCH [Concomitant]
     Dosage: DOSE: 5% STRIPS IN PM
  15. ALTACE [Concomitant]
  16. COUMADIN [Concomitant]
  17. PAXIL [Concomitant]
  18. COMBIVENT [Concomitant]
  19. OXYCONTIN [Concomitant]
  20. FOSAMAX [Concomitant]
  21. K-DUR 10 [Concomitant]
  22. OXYGEN [Concomitant]
     Dosage: DOSE: 3L/MIN PRN AND AT NIGHT
  23. CENTRUM SILVER [Concomitant]
     Dosage: DOSE: UNK
  24. OMEGA 3 [Concomitant]
     Dosage: DOSE: UNK
  25. COENZYME Q10 [Concomitant]
     Dosage: DOSE: UNK
  26. CA [Concomitant]
     Dosage: DOSE: 250MG QHRX10HR
  27. MAGNESIUM [Concomitant]
     Dosage: DOSE: 80MG 1 QHRX10HR
  28. D3 [Concomitant]
     Dosage: DOSE: 400 IU 1QHRX10HR
  29. CITRACAL [Concomitant]
  30. HUMALOG [Concomitant]
     Dosage: DOSE: U-100 ON A SLIDING SCALE NOS
  31. SPIRONOLACTONE [Concomitant]
  32. LOPRESSOR [Concomitant]
     Dosage: DOSE: 25 MG TAB:  1/4 TAB
  33. ANTACID TAB [Concomitant]
     Indication: NAUSEA
  34. PHENERGAN [Concomitant]
     Indication: NAUSEA

REACTIONS (17)
  - BLOOD GLUCOSE INCREASED [None]
  - BUNDLE BRANCH BLOCK [None]
  - FATIGUE [None]
  - FEMORAL ARTERY OCCLUSION [None]
  - HYPERGLYCAEMIA [None]
  - LOCALISED INFECTION [None]
  - MYOCARDIAL INFARCTION [None]
  - OSTEOPOROSIS [None]
  - PAIN [None]
  - PAIN IN EXTREMITY [None]
  - PERIPHERAL VASCULAR DISORDER [None]
  - PHARMACEUTICAL PRODUCT COMPLAINT [None]
  - PULMONARY FUNCTION TEST ABNORMAL [None]
  - SKIN LACERATION [None]
  - THROMBOSIS [None]
  - TROPONIN INCREASED [None]
  - VOMITING [None]
